FAERS Safety Report 16028051 (Version 1)
Quarter: 2019Q1

REPORT INFORMATION
  Report Type: Spontaneous
  Country: US (occurrence: US)
  Receive Date: 20190304
  Receipt Date: 20190304
  Transmission Date: 20190418
  Serious: Yes (Other)
  Sender: FDA-Public Use
  Company Number: US-009507513-1902USA011097

PATIENT
  Age: 64 Year
  Sex: Male

DRUGS (5)
  1. TRICOR (ADENOSINE) [Concomitant]
     Active Substance: ADENOSINE
  2. LISINOPRIL. [Concomitant]
     Active Substance: LISINOPRIL
  3. JANUVIA [Suspect]
     Active Substance: SITAGLIPTIN PHOSPHATE
     Indication: TYPE 2 DIABETES MELLITUS
     Dosage: 1 X 100MG TABLET DAILY
     Route: 048
     Dates: start: 201812, end: 2019
  4. METFORMIN [Concomitant]
     Active Substance: METFORMIN HYDROCHLORIDE
     Dosage: UNK
  5. MELOXICAM. [Concomitant]
     Active Substance: MELOXICAM

REACTIONS (4)
  - Product dose omission [Unknown]
  - Diabetes mellitus inadequate control [Not Recovered/Not Resolved]
  - Inability to afford medication [Unknown]
  - Blood glucose increased [Not Recovered/Not Resolved]

NARRATIVE: CASE EVENT DATE: 20190204
